FAERS Safety Report 6765458-1 (Version None)
Quarter: 2010Q2

REPORT INFORMATION
  Report Type: 
  Country: None (occurrence: None)
  Receive Date: 20100611
  Receipt Date: 20100603
  Transmission Date: 20101027
  Serious: Yes (Other)
  Sender: FDA-Public Use
  Company Number: JP-PFIZER INC-2010069543

PATIENT

DRUGS (1)
  1. SOLU-CORTEF [Suspect]
     Dosage: UNK

REACTIONS (1)
  - BLOOD MAGNESIUM INCREASED [None]
